FAERS Safety Report 14391739 (Version 7)
Quarter: 2018Q3

REPORT INFORMATION
  Report Type: Report from Study
  Country: FR (occurrence: FR)
  Receive Date: 20180116
  Receipt Date: 20180814
  Transmission Date: 20181010
  Serious: Yes (Hospitalization, Other)
  Sender: FDA-Public Use
  Company Number: FR-TEVA-2018-FR-845115

PATIENT
  Age: 4 Year
  Sex: Female

DRUGS (25)
  1. METHOTREXATE. [Suspect]
     Active Substance: METHOTREXATE
     Dosage: 17.5 MILLIGRAM DAILY;
     Route: 048
     Dates: start: 20170803
  2. VINCRISTINE [Suspect]
     Active Substance: VINCRISTINE
     Dosage: UNSPECIFIED
     Route: 042
     Dates: start: 20170615
  3. TIOGUANINE [Suspect]
     Active Substance: THIOGUANINE ANHYDROUS
     Indication: ACUTE LYMPHOCYTIC LEUKAEMIA
     Route: 048
     Dates: start: 20171227, end: 20180109
  4. ADRIAMYCIN [Suspect]
     Active Substance: DOXORUBICIN HYDROCHLORIDE
     Dosage: 17.4 MILLIGRAM DAILY; 17.4 MG, 1X/DAY:QD
     Route: 042
     Dates: start: 20171106, end: 20171213
  5. TIOGUANINE [Suspect]
     Active Substance: THIOGUANINE ANHYDROUS
     Dosage: 40 MILLIGRAM DAILY; 1X/DAY
     Route: 048
     Dates: start: 20171227, end: 20180109
  6. DOXORUBICIN HYDROCHLORIDE. [Suspect]
     Active Substance: DOXORUBICIN HYDROCHLORIDE
     Indication: ACUTE LYMPHOCYTIC LEUKAEMIA
     Route: 042
     Dates: start: 20171106, end: 20171213
  7. PEGASPARGASE [Suspect]
     Active Substance: PEGASPARGASE
     Indication: ACUTE LYMPHOCYTIC LEUKAEMIA
     Dosage: 900 IU (INTERNATIONAL UNIT) DAILY;
     Route: 042
     Dates: start: 20170619
  8. METHOTREXATE. [Suspect]
     Active Substance: METHOTREXATE
     Dosage: 17.5 MILLIGRAM DAILY; 1X/DAY
     Route: 048
     Dates: start: 20170803
  9. METHOTREXATE. [Suspect]
     Active Substance: METHOTREXATE
     Dosage: 12 MILLIGRAM DAILY; 1X/DAY
     Route: 037
     Dates: start: 20170608
  10. VINCRISTINE [Suspect]
     Active Substance: VINCRISTINE
     Indication: ACUTE LYMPHOCYTIC LEUKAEMIA
     Dosage: 1 MILLIGRAM DAILY;
     Route: 042
     Dates: start: 20170615
  11. DEXAMETHASONE. [Suspect]
     Active Substance: DEXAMETHASONE
     Dosage: 7 MILLIGRAM DAILY; 1X/DAY
     Route: 048
     Dates: start: 20171106, end: 20171120
  12. DEXAMETHASONE. [Suspect]
     Active Substance: DEXAMETHASONE
     Dosage: UNSPECIFIED
     Route: 048
     Dates: start: 20170615, end: 20170925
  13. DEXAMETHASONE. [Suspect]
     Active Substance: DEXAMETHASONE
     Dosage: UNSPECIFIED
     Route: 048
     Dates: start: 20171106, end: 20171120
  14. 6?MERCAPTOPURINE MONOHYDRATE [Suspect]
     Active Substance: MERCAPTOPURINE
     Indication: ACUTE LYMPHOCYTIC LEUKAEMIA
     Dosage: 35 MILLIGRAM DAILY;
     Route: 048
     Dates: start: 20170727
  15. CYTARABINE. [Suspect]
     Active Substance: CYTARABINE
     Indication: ACUTE LYMPHOCYTIC LEUKAEMIA
     Dosage: 50 MILLIGRAM DAILY; 1X/DAY
     Route: 042
     Dates: start: 20171229, end: 20180118
  16. METHOTREXATE. [Suspect]
     Active Substance: METHOTREXATE
     Indication: ACUTE LYMPHOCYTIC LEUKAEMIA
     Dosage: 12 MILLIGRAM DAILY;
     Route: 038
     Dates: start: 20170608
  17. VINCRISTINE [Suspect]
     Active Substance: VINCRISTINE
     Dosage: UNK, UNK
     Route: 042
     Dates: start: 20171106, end: 20171213
  18. PEGASPARGASE [Suspect]
     Active Substance: PEGASPARGASE
     Dosage: UNK, UNK
     Route: 042
     Dates: start: 20171109, end: 20171109
  19. METHOTREXATE. [Suspect]
     Active Substance: METHOTREXATE
     Dosage: 12 MILLIGRAM DAILY; 1X/DAY
     Route: 037
     Dates: start: 20171109, end: 20171109
  20. PEGASPARGASE [Suspect]
     Active Substance: PEGASPARGASE
     Dosage: 900 IU (INTERNATIONAL UNIT) DAILY; 1X/DAY
     Route: 042
     Dates: start: 20170619
  21. CYCLOPHOSPHAMIDE. [Suspect]
     Active Substance: CYCLOPHOSPHAMIDE
     Indication: ACUTE LYMPHOCYTIC LEUKAEMIA
     Dosage: 650 MILLIGRAM DAILY; 650 MG, 1X/DAY:QD
     Route: 042
     Dates: start: 20171227, end: 20171227
  22. ADRIAMYCIN [Suspect]
     Active Substance: DOXORUBICIN HYDROCHLORIDE
     Indication: ACUTE LYMPHOCYTIC LEUKAEMIA
     Dosage: 17.4 MILLIGRAM DAILY;
     Route: 042
     Dates: start: 20171106
  23. DEXAMETHASONE. [Suspect]
     Active Substance: DEXAMETHASONE
     Indication: ACUTE LYMPHOCYTIC LEUKAEMIA
     Dosage: 7 MILLIGRAM DAILY;
     Route: 048
     Dates: start: 20171106
  24. DEXAMETHASONE. [Suspect]
     Active Substance: DEXAMETHASONE
     Dosage: 4 MILLIGRAM DAILY;
     Route: 048
     Dates: start: 20170615
  25. 6?MERCAPTOPURINE MONOHYDRATE [Suspect]
     Active Substance: MERCAPTOPURINE
     Dosage: 35 MILLIGRAM DAILY; 1X/DAY
     Route: 048
     Dates: start: 20170727

REACTIONS (9)
  - Febrile bone marrow aplasia [Recovered/Resolved]
  - Perineal infection [Recovered/Resolved]
  - Perineal necrosis [Recovered/Resolved]
  - Perineal infection [Not Recovered/Not Resolved]
  - Perineal infection [Recovered/Resolved]
  - Product use in unapproved indication [Unknown]
  - Medication error [Recovered/Resolved]
  - Off label use [Unknown]
  - Febrile bone marrow aplasia [Not Recovered/Not Resolved]

NARRATIVE: CASE EVENT DATE: 20171106
